FAERS Safety Report 24079517 (Version 3)
Quarter: 2024Q3

REPORT INFORMATION
  Report Type: Spontaneous
  Country: US (occurrence: US)
  Receive Date: 20240711
  Receipt Date: 20240918
  Transmission Date: 20241016
  Serious: No
  Sender: BRISTOL MYERS SQUIBB
  Company Number: US-BRISTOL-MYERS SQUIBB COMPANY-2024-109042

PATIENT
  Age: 79 Year
  Sex: Female

DRUGS (3)
  1. ZEPOSIA [Suspect]
     Active Substance: OZANIMOD HYDROCHLORIDE
     Indication: Proctitis ulcerative
     Dosage: FREQUENCY: DAILY
     Route: 048
     Dates: start: 202406
  2. ZEPOSIA [Suspect]
     Active Substance: OZANIMOD HYDROCHLORIDE
     Indication: Rectal haemorrhage
     Dosage: FREQUENCY: DAILY
     Route: 048
     Dates: start: 202406
  3. ZEPOSIA [Suspect]
     Active Substance: OZANIMOD HYDROCHLORIDE
     Dosage: FREQUENCY: 1 TIME A DAY
     Route: 048
     Dates: start: 202406

REACTIONS (4)
  - Asthenia [Unknown]
  - Therapeutic product effect decreased [Unknown]
  - Pain [Unknown]
  - Discomfort [Unknown]
